FAERS Safety Report 6716321-3 (Version None)
Quarter: 2010Q2

REPORT INFORMATION
  Report Type: 
  Country: None (occurrence: None)
  Receive Date: 20100507
  Receipt Date: 20100504
  Transmission Date: 20101027
  Serious: Yes (Death, Other)
  Sender: FDA-Public Use
  Company Number: PHHY2010PH28747

PATIENT
  Sex: Male

DRUGS (1)
  1. GLEEVEC [Suspect]
     Indication: GASTROINTESTINAL STROMAL TUMOUR
     Dosage: 400 MG, DAILY
     Route: 048

REACTIONS (5)
  - GASTROINTESTINAL STROMAL TUMOUR [None]
  - MALIGNANT NEOPLASM PROGRESSION [None]
  - NOSOCOMIAL INFECTION [None]
  - PNEUMONIA [None]
  - SEPSIS [None]
